FAERS Safety Report 23078792 (Version 1)
Quarter: 2023Q4

REPORT INFORMATION
  Report Type: Spontaneous
  Country: BE (occurrence: BE)
  Receive Date: 20231018
  Receipt Date: 20231018
  Transmission Date: 20240109
  Serious: Yes (Other)
  Sender: FDA-Public Use
  Company Number: BE-KOREA IPSEN Pharma-2023-23961

PATIENT
  Age: 73 Year
  Sex: Male

DRUGS (2)
  1. LANREOTIDE ACETATE [Suspect]
     Active Substance: LANREOTIDE ACETATE
     Indication: Product used for unknown indication
     Route: 058
  2. PAZOPANIB [Concomitant]
     Active Substance: PAZOPANIB
     Dosage: 2X400 MG/DAY
     Dates: start: 202304

REACTIONS (1)
  - Metastases to lung [Unknown]
